FAERS Safety Report 21472757 (Version 1)
Quarter: 2022Q4

REPORT INFORMATION
  Report Type: Spontaneous
  Country: US (occurrence: US)
  Receive Date: 20221018
  Receipt Date: 20221018
  Transmission Date: 20230113
  Serious: No
  Sender: FDA-Public Use
  Company Number: US-PFIZER INC-202201236538

PATIENT
  Age: 78 Year
  Sex: Male
  Weight: 98.88 kg

DRUGS (1)
  1. PAXLOVID [Suspect]
     Active Substance: NIRMATRELVIR\RITONAVIR
     Indication: COVID-19 treatment
     Dosage: 3 DF (TAKE 3 TABLETS TOGETHER, IN WHICH TWO OF THEM WERE 150MG TABLETS AND ONE WAS 100MG)
     Dates: start: 20221011, end: 20221014

REACTIONS (2)
  - Diarrhoea [Recovered/Resolved with Sequelae]
  - Haemorrhoids [Recovering/Resolving]

NARRATIVE: CASE EVENT DATE: 20221001
